FAERS Safety Report 16431143 (Version 2)
Quarter: 2019Q3

REPORT INFORMATION
  Report Type: Spontaneous
  Country: US (occurrence: US)
  Receive Date: 20190614
  Receipt Date: 20190913
  Transmission Date: 20191004
  Serious: No
  Sender: FDA-Public Use
  Company Number: US-PFIZER INC-2019252813

PATIENT
  Age: 88 Year
  Sex: Male
  Weight: 63.49 kg

DRUGS (18)
  1. DITROPAN [Concomitant]
     Active Substance: OXYBUTYNIN CHLORIDE
     Dosage: 5 MG, 3X/DAY
     Route: 048
  2. REQUIP [Concomitant]
     Active Substance: ROPINIROLE HYDROCHLORIDE
     Dosage: 0.5 MG, 1X/DAY BEDTIME
     Route: 048
  3. TAFAMIDIS [Suspect]
     Active Substance: TAFAMIDIS MEGLUMINE
     Indication: AMYLOIDOSIS
     Dosage: 61 MG, 1X/DAY
  4. ALDACTONE [Concomitant]
     Active Substance: SPIRONOLACTONE
     Dosage: 12.5 MG, DAILY
     Route: 048
  5. KLOR-CON M20 [Concomitant]
     Active Substance: POTASSIUM CHLORIDE
     Dosage: 20 MEQ, CBK (DC)
     Route: 048
  6. PROTONIX [Concomitant]
     Active Substance: PANTOPRAZOLE SODIUM
     Dosage: 40 MG, DAILY
     Route: 048
  7. ULTRAM [Concomitant]
     Active Substance: TRAMADOL HYDROCHLORIDE
     Dosage: 25 MG, Q6H PRN
     Route: 048
  8. BUMEX [Concomitant]
     Active Substance: BUMETANIDE
     Dosage: 2 MG, 2X/DAY
     Route: 048
  9. FLOMAX [Concomitant]
     Active Substance: TAMSULOSIN HYDROCHLORIDE
     Dosage: 0.4 MG, 1X/DAY  BEDTIME
     Route: 048
  10. PROSCAR [Concomitant]
     Active Substance: FINASTERIDE
     Dosage: 5 MG, DAILY
     Route: 048
  11. EFFER K [Concomitant]
     Dosage: 60 MEQ, AS NEEDED FEEDING TUBE
  12. TAFAMIDIS [Suspect]
     Active Substance: TAFAMIDIS MEGLUMINE
     Indication: CARDIAC AMYLOIDOSIS
  13. FORTEO [Concomitant]
     Active Substance: TERIPARATIDE
     Dosage: 20 UG, DAILY
     Route: 058
  14. PROAMATINE [Concomitant]
     Active Substance: MIDODRINE HYDROCHLORIDE
     Dosage: 20 MG, 3X/DAY
     Route: 048
  15. COLACE [Concomitant]
     Active Substance: DOCUSATE SODIUM
     Dosage: 100 MG, DAILY
     Route: 048
  16. EFFER K [Concomitant]
     Dosage: 40 MEQ, AS NEEDED FEEDING TUBE
  17. OCEAN SALINE NASAL SPRAY [Concomitant]
     Active Substance: SODIUM CHLORIDE
     Dosage: 1 SPRAY Q4HR PRN
     Route: 045
  18. VIT D [Concomitant]
     Active Substance: VITAMIN D NOS
     Dosage: 50000 IU, AS NEEDED
     Route: 048

REACTIONS (2)
  - Hypoacusis [Recovered/Resolved]
  - Amnesia [Recovered/Resolved]
